FAERS Safety Report 19998128 (Version 1)
Quarter: 2021Q4

REPORT INFORMATION
  Report Type: Report from Study
  Country: US (occurrence: US)
  Receive Date: 20211026
  Receipt Date: 20211026
  Transmission Date: 20220303
  Serious: No
  Sender: FDA-Public Use
  Company Number: US-INCYTE CORPORATION-2021IN008442

PATIENT

DRUGS (1)
  1. JAKAFI [Suspect]
     Active Substance: RUXOLITINIB
     Indication: Myelofibrosis
     Dosage: 10 MILLIGRAM, BID (5MG TAB)
     Route: 048
     Dates: start: 20200822

REACTIONS (2)
  - Peripheral swelling [Not Recovered/Not Resolved]
  - Increased tendency to bruise [Not Recovered/Not Resolved]
